FAERS Safety Report 20683845 (Version 1)
Quarter: 2022Q2

REPORT INFORMATION
  Report Type: Spontaneous
  Country: US (occurrence: None)
  Receive Date: 20220405
  Receipt Date: 20220405
  Transmission Date: 20220721
  Serious: Yes (Death, Hospitalization)
  Sender: FDA-Public Use
  Company Number: None

PATIENT
  Age: 78 Year
  Sex: Male
  Weight: 98.9 kg

DRUGS (11)
  1. COUMADIN [Suspect]
     Active Substance: WARFARIN SODIUM
  2. ENTYVIO [Concomitant]
     Active Substance: VEDOLIZUMAB
  3. FOSAMAX [Concomitant]
     Active Substance: ALENDRONATE SODIUM
  4. Cholecalciferol, Vitamin D3 [Concomitant]
  5. Beclomethasone (QVAR REDIHALER) [Concomitant]
  6. Diltiazem CD (CARDIZEM CD) [Concomitant]
  7. FERROUS SULFATE [Concomitant]
     Active Substance: FERROUS SULFATE
  8. COUMADIN [Concomitant]
     Active Substance: WARFARIN SODIUM
  9. Lisinopril (ZESTRIL, PRINIVIL) [Concomitant]
  10. Hydrochlorothiazide (HYDRODIURIL, ESIDRIX) [Concomitant]
  11. PRILOSEC [Concomitant]
     Active Substance: OMEPRAZOLE MAGNESIUM

REACTIONS (4)
  - Pleural effusion [None]
  - Atelectasis [None]
  - Chest wall haematoma [None]
  - Blood creatinine decreased [None]

NARRATIVE: CASE EVENT DATE: 20211126
